FAERS Safety Report 18902996 (Version 1)
Quarter: 2021Q1

REPORT INFORMATION
  Report Type: Spontaneous
  Country: ES (occurrence: ES)
  Receive Date: 20210217
  Receipt Date: 20210217
  Transmission Date: 20210420
  Serious: Yes (Hospitalization)
  Sender: FDA-Public Use
  Company Number: ES-PFIZER INC-2021128471

PATIENT
  Age: 87 Year
  Sex: Female

DRUGS (8)
  1. MORFINA LANNACHER [Suspect]
     Active Substance: MORPHINE HYDROCHLORIDE
     Indication: PAIN
     Dosage: 100 MG, 1X/DAY (EVERY 24H)
     Dates: start: 20191021
  2. GABAPENTINA [Suspect]
     Active Substance: GABAPENTIN
     Indication: PAIN
     Dosage: 400 MG, 2X/DAY (FREQ:12 H)
     Route: 048
     Dates: start: 20210109
  3. CLOTRIMAZOLE. [Concomitant]
     Active Substance: CLOTRIMAZOLE
     Dosage: 10 MG/G, CREAM
  4. DELTIUS [Concomitant]
     Active Substance: CHOLECALCIFEROL
     Dosage: 25000/2.5 ML
     Route: 048
  5. RISPERIDONA TARBIS [Suspect]
     Active Substance: RISPERIDONE
     Indication: AGITATION
     Dosage: 0.5 MG
     Route: 048
     Dates: start: 20210126
  6. METAMIZOLE [Concomitant]
     Active Substance: METAMIZOLE
     Dosage: 575 MG
  7. TRAZODONE [Suspect]
     Active Substance: TRAZODONE HYDROCHLORIDE
     Indication: INSOMNIA
     Dosage: 100 MG, 1X/DAY (FREQ:24 H)
     Route: 048
     Dates: start: 20210126
  8. OMEPRAZOLE. [Concomitant]
     Active Substance: OMEPRAZOLE
     Dosage: 20 MG

REACTIONS (1)
  - Hypoxic-ischaemic encephalopathy [Recovering/Resolving]

NARRATIVE: CASE EVENT DATE: 20210127
